FAERS Safety Report 13841455 (Version 1)
Quarter: 2017Q3

REPORT INFORMATION
  Report Type: Spontaneous
  Country: CN (occurrence: CN)
  Receive Date: 20170807
  Receipt Date: 20170807
  Transmission Date: 20171127
  Serious: Yes (Other)
  Sender: FDA-Public Use
  Company Number: CN-MYLANLABS-2017M1048405

PATIENT

DRUGS (3)
  1. CISPLATIN. [Suspect]
     Active Substance: CISPLATIN
     Indication: OROPHARYNGEAL SQUAMOUS CELL CARCINOMA
     Dosage: 25 MG/M2 ON DAYS 1-3; EACH COURSE OF 21 DAYS
     Route: 065
  2. TS-1 [Suspect]
     Active Substance: GIMERACIL\OTERACIL\TEGAFUR
     Indication: OROPHARYNGEAL SQUAMOUS CELL CARCINOMA
     Dosage: 40 MG/M2 ON DAYS 1-14; EACH COURSE OF 21 DAYS
     Route: 048
  3. PACLITAXEL. [Suspect]
     Active Substance: PACLITAXEL
     Indication: OROPHARYNGEAL SQUAMOUS CELL CARCINOMA
     Dosage: 135 MG/M2 ON DAY 1; EACH COURSE OF 21 DAYS
     Route: 065

REACTIONS (3)
  - Mucosal toxicity [Recovered/Resolved]
  - Leukopenia [Recovered/Resolved]
  - Gastrointestinal disorder [Recovered/Resolved]
